FAERS Safety Report 25856369 (Version 1)
Quarter: 2025Q3

REPORT INFORMATION
  Report Type: Spontaneous
  Country: JP (occurrence: JP)
  Receive Date: 20250928
  Receipt Date: 20250928
  Transmission Date: 20251020
  Serious: No
  Sender: MERCK SHARP & DOHME LLC
  Company Number: JP-009507513-2333794

PATIENT
  Age: 68 Year
  Sex: Male

DRUGS (2)
  1. MOLNUPIRAVIR [Suspect]
     Active Substance: MOLNUPIRAVIR
     Indication: COVID-19
  2. RTX, Rituximab [Concomitant]
     Indication: Lymphoma

REACTIONS (2)
  - Product use in unapproved indication [Unknown]
  - No adverse event [Unknown]
